FAERS Safety Report 19824872 (Version 1)
Quarter: 2021Q3

REPORT INFORMATION
  Report Type: Other
  Country: CA (occurrence: CA)
  Receive Date: 20210914
  Receipt Date: 20210914
  Transmission Date: 20211014
  Serious: Yes (Other)
  Sender: FDA-Public Use
  Company Number: CA-APOTEX-2021AP042395

PATIENT
  Sex: Male

DRUGS (3)
  1. APO?ABIRATERONE [Suspect]
     Active Substance: ABIRATERONE ACETATE
     Dosage: 250 MILLIGRAM, QD
     Route: 048
  2. APO?ABIRATERONE [Suspect]
     Active Substance: ABIRATERONE ACETATE
     Indication: HORMONE-REFRACTORY PROSTATE CANCER
     Dosage: 1000 MILLIGRAM, QD
     Route: 065
  3. APO?ABIRATERONE [Suspect]
     Active Substance: ABIRATERONE ACETATE
     Dosage: 1000 MILLIGRAM, QD
     Route: 065

REACTIONS (6)
  - Intentional product use issue [Unknown]
  - Angina pectoris [Unknown]
  - Vomiting [Unknown]
  - Headache [Unknown]
  - Drug intolerance [Unknown]
  - Dizziness [Unknown]
